FAERS Safety Report 4556469-5 (Version None)
Quarter: 2005Q1

REPORT INFORMATION
  Report Type: 
  Country: None (occurrence: None)
  Receive Date: 20050120
  Receipt Date: 20041123
  Transmission Date: 20050727
  Serious: Yes (Hospitalization, Other)
  Sender: FDA-Public Use
  Company Number: FR-ABBOTT-04P-056-0281528-00

PATIENT
  Sex: Male
  Weight: 75 kg

DRUGS (5)
  1. HUMIRA [Suspect]
     Indication: RHEUMATOID ARTHRITIS
     Route: 058
     Dates: start: 20030501, end: 20040601
  2. PREDNISONE [Concomitant]
     Indication: POLYARTHRITIS
     Route: 048
  3. FLURBIPROFEN [Concomitant]
     Indication: POLYARTHRITIS
     Route: 048
  4. ACETAMINOPHEN W/ PROPOXYPHENE HCL [Concomitant]
     Indication: POLYARTHRITIS
     Route: 048
  5. OMEPRAZOLE [Concomitant]
     Indication: PROPHYLAXIS AGAINST GASTROINTESTINAL ULCER
     Route: 048

REACTIONS (3)
  - ABNORMAL BEHAVIOUR [None]
  - DEPRESSION [None]
  - GLIOBLASTOMA [None]
